FAERS Safety Report 8157170-1 (Version None)
Quarter: 2012Q1

REPORT INFORMATION
  Report Type: 
  Country: None (occurrence: None)
  Receive Date: 20120222
  Receipt Date: 20120216
  Transmission Date: 20120608
  Serious: Yes (Hospitalization, Other)
  Sender: FDA-Public Use
  Company Number: PHHO2012BR000877

PATIENT
  Sex: Female
  Weight: 77.8 kg

DRUGS (8)
  1. AMIODARONE HCL [Concomitant]
     Indication: ATRIAL FIBRILLATION
     Dosage: 200 MG, QD
     Route: 048
     Dates: start: 20050101
  2. CARVEDILOL [Suspect]
     Indication: CARDIAC FAILURE CHRONIC
     Dosage: 6.25 MG, BID
     Route: 048
     Dates: start: 20100101
  3. WARFARIN SODIUM [Suspect]
     Indication: CARDIAC FAILURE CHRONIC
     Dosage: UNK
  4. ENALAPRIL MALEATE [Suspect]
     Indication: CARDIAC FAILURE CHRONIC
     Dosage: CODE NOT BROKEN
     Dates: start: 20111122
  5. VALSARTAN [Suspect]
     Indication: CARDIAC FAILURE CHRONIC
     Dosage: CODE NOT BROKEN
     Dates: start: 20111122
  6. BLINDED NO TREATMENT RECEIVED [Suspect]
     Indication: CARDIAC FAILURE CHRONIC
     Dosage: CODE NOT BROKEN
     Dates: start: 20111122
  7. FUROSEMIDE [Suspect]
  8. ALDACTONE [Suspect]
     Indication: CARDIAC FAILURE CHRONIC
     Dosage: 25 MG, QD
     Route: 048
     Dates: start: 20100101

REACTIONS (2)
  - CARDIAC FAILURE [None]
  - PROTHROMBIN TIME PROLONGED [None]
